FAERS Safety Report 10167126 (Version 2)
Quarter: 2014Q2

REPORT INFORMATION
  Report Type: Spontaneous
  Country: US (occurrence: US)
  Receive Date: 20140512
  Receipt Date: 20140605
  Transmission Date: 20141212
  Serious: No
  Sender: FDA-Public Use
  Company Number: US-009507513-1405USA001514

PATIENT
  Age: 60 Year
  Sex: Female

DRUGS (6)
  1. OXYTROL FOR WOMEN [Suspect]
     Indication: HYPERTONIC BLADDER
     Dosage: 1 DF, Q3D
     Route: 062
     Dates: start: 20140416, end: 20140418
  2. OXYTROL FOR WOMEN [Suspect]
     Dosage: 1 DF, Q3D
     Route: 062
     Dates: start: 20140301, end: 20140304
  3. HYDROCHLOROT [Concomitant]
     Indication: HYPERTENSION
     Dosage: 12.5 MG, UNKNOWN
  4. LOSARTAN POTASSIUM [Concomitant]
     Indication: HYPERTENSION
     Dosage: UNK, UNKNOWN
  5. CHOLECALCIFEROL [Concomitant]
     Indication: PRODUCT USED FOR UNKNOWN INDICATION
     Dosage: UNK, UNKNOWN
  6. LUNADA BIOMEDICAL AMBEREN [Concomitant]
     Indication: MENOPAUSAL SYMPTOMS
     Dosage: UNK, UNKNOWN

REACTIONS (6)
  - Application site burn [Recovering/Resolving]
  - Application site irritation [Recovering/Resolving]
  - Application site dryness [Not Recovered/Not Resolved]
  - Rash erythematous [Not Recovered/Not Resolved]
  - Application site pruritus [Recovering/Resolving]
  - Inappropriate schedule of drug administration [Unknown]
